FAERS Safety Report 5639813-7 (Version None)
Quarter: 2008Q1

REPORT INFORMATION
  Report Type: 
  Country: None (occurrence: None)
  Receive Date: 20080226
  Receipt Date: 20080226
  Transmission Date: 20080703
  Serious: Yes (Hospitalization)
  Sender: FDA-Public Use
  Company Number: None

PATIENT
  Age: 31 Year
  Sex: Male
  Weight: 103 kg

DRUGS (3)
  1. PACLITAXEL [Suspect]
     Indication: OESOPHAGEAL CARCINOMA
     Dosage: 50MG/M2=114MG WEEKLY X 6 IV
     Route: 042
     Dates: start: 20080206, end: 20080219
  2. POLIGLUMEX [Suspect]
     Indication: OESOPHAGEAL CARCINOMA
     Dosage: 50MG/M2 = 114 MG WEEKLY X 6 IV
     Route: 042
     Dates: start: 20080206, end: 20080219
  3. CISPLATIN [Suspect]
     Indication: OESOPHAGEAL CARCINOMA
     Dosage: 25MG/M2 = 57MG WEEKLY X 6 IV
     Route: 042
     Dates: start: 20080206, end: 20080219

REACTIONS (7)
  - BLOOD PRESSURE DIASTOLIC DECREASED [None]
  - DIARRHOEA [None]
  - DRUG HYPERSENSITIVITY [None]
  - HEART RATE INCREASED [None]
  - PYREXIA [None]
  - VIRAL INFECTION [None]
  - VOMITING [None]
